FAERS Safety Report 11882760 (Version 3)
Quarter: 2017Q4

REPORT INFORMATION
  Report Type: Spontaneous
  Country: US (occurrence: US)
  Receive Date: 20151231
  Receipt Date: 20171116
  Transmission Date: 20180320
  Serious: Yes (Hospitalization, Other)
  Sender: FDA-Public Use
  Company Number: US-BRISTOL-MYERS SQUIBB COMPANY-BMS-2015-092765

PATIENT
  Age: 10 Year
  Sex: Female

DRUGS (2)
  1. ASPIRIN. [Suspect]
     Active Substance: ASPIRIN
     Indication: KAWASAKI^S DISEASE
     Route: 065
  2. WARFARIN SODIUM. [Suspect]
     Active Substance: WARFARIN SODIUM
     Indication: KAWASAKI^S DISEASE
     Route: 065

REACTIONS (8)
  - Transfusion [Unknown]
  - Pericardial drainage [Unknown]
  - Epistaxis [Unknown]
  - Coronary artery occlusion [Unknown]
  - Product use in unapproved indication [Unknown]
  - Pericardial haemorrhage [Unknown]
  - Menorrhagia [Unknown]
  - Anaemia [Unknown]
